FAERS Safety Report 20669546 (Version 1)
Quarter: 2022Q2

REPORT INFORMATION
  Report Type: Spontaneous
  Country: US (occurrence: US)
  Receive Date: 20220404
  Receipt Date: 20220404
  Transmission Date: 20220721
  Serious: Yes (Hospitalization)
  Sender: FDA-Public Use
  Company Number: US-PFIZER INC-202200483897

PATIENT
  Age: 80 Year
  Sex: Male
  Weight: 83.91 kg

DRUGS (2)
  1. VYNDAMAX [Suspect]
     Active Substance: TAFAMIDIS
     Indication: Cardiac amyloidosis
     Dosage: 61 MG, 1X/DAY, EVERY MORNING
     Route: 048
     Dates: start: 20211120
  2. ELIQUIS [Concomitant]
     Active Substance: APIXABAN
     Indication: Anticoagulant therapy
     Dosage: 5 MG, 2X/DAY, (1 TABLET EVERY 12 HOURS)

REACTIONS (1)
  - Pituitary tumour [Recovered/Resolved]

NARRATIVE: CASE EVENT DATE: 20211215
